FAERS Safety Report 4904181-2 (Version None)
Quarter: 2006Q1

REPORT INFORMATION
  Report Type: 
  Country: None (occurrence: None)
  Receive Date: 20060208
  Receipt Date: 20050805
  Transmission Date: 20060701
  Serious: No
  Sender: FDA-Public Use
  Company Number: US-GLAXOSMITHKLINE-A0569123A

PATIENT
  Age: 39 Year
  Sex: Female

DRUGS (4)
  1. PAROXETINE HCL [Suspect]
     Indication: DEPRESSION
     Dosage: 60MG PER DAY
     Route: 048
  2. PAXIL CR [Suspect]
     Indication: DEPRESSION
     Route: 048
  3. WELLBUTRIN XL [Concomitant]
  4. TRAZODONE [Concomitant]

REACTIONS (1)
  - DRUG INEFFECTIVE [None]
